FAERS Safety Report 10390238 (Version 2)
Quarter: 2014Q3

REPORT INFORMATION
  Report Type: Spontaneous
  Country: US (occurrence: None)
  Receive Date: 20140814
  Receipt Date: 20140825
  Transmission Date: 20150326
  Serious: Yes (Other)
  Sender: FDA-Public Use
  Company Number: AUR-APL-2014-08616

PATIENT
  Age: 71 Year
  Sex: Male
  Weight: 85.7 kg

DRUGS (2)
  1. SILDENAFIL CITRATE (SILDENAFIL CITRATE) [Suspect]
     Active Substance: SILDENAFIL CITRATE
     Indication: ERECTILE DYSFUNCTION
     Dates: start: 201403
  2. METFORMIN [Suspect]
     Active Substance: METFORMIN HYDROCHLORIDE
     Indication: DIABETES MELLITUS

REACTIONS (2)
  - Drug ineffective [None]
  - Hyperglycaemia [None]

NARRATIVE: CASE EVENT DATE: 201408
